FAERS Safety Report 8958792 (Version 1)
Quarter: 2012Q4

REPORT INFORMATION
  Report Type: 
  Country: IT (occurrence: IT)
  Receive Date: 20121212
  Receipt Date: 20121212
  Transmission Date: 20130627
  Serious: Yes (Other)
  Sender: FDA-Public Use
  Company Number: IT-TEVA-374857ISR

PATIENT
  Age: 25 Year
  Sex: Male

DRUGS (1)
  1. KETOPROFENE [Suspect]
     Indication: PAIN IN EXTREMITY
     Route: 048
     Dates: start: 20121109, end: 20121109

REACTIONS (3)
  - Urticaria [Recovering/Resolving]
  - Angioedema [Recovering/Resolving]
  - Nausea [Recovering/Resolving]
